APPROVED DRUG PRODUCT: DIPROLENE
Active Ingredient: BETAMETHASONE DIPROPIONATE
Strength: EQ 0.05% BASE
Dosage Form/Route: OINTMENT, AUGMENTED;TOPICAL
Application: N018741 | Product #001 | TE Code: AB
Applicant: ORGANON LLC A SUB OF ORGANON AND CO
Approved: Jul 27, 1983 | RLD: Yes | RS: Yes | Type: RX